FAERS Safety Report 6383738-9 (Version None)
Quarter: 2009Q4

REPORT INFORMATION
  Report Type: 
  Country: None (occurrence: None)
  Receive Date: 20091001
  Receipt Date: 20090921
  Transmission Date: 20100525
  Serious: No
  Sender: FDA-Public Use
  Company Number: US-B.I. PHARMACEUTICALS,INC./RIDGEFIELD-2009-BP-07313BP

PATIENT
  Sex: Male
  Weight: 65.3 kg

DRUGS (8)
  1. SPIRIVA [Suspect]
     Indication: CHRONIC OBSTRUCTIVE PULMONARY DISEASE
     Dosage: 18 MCG
     Route: 055
     Dates: start: 20090105, end: 20090327
  2. METHAMPHETAMINE [Concomitant]
     Indication: GLAUCOMA
  3. LISINOPRIL AND HYDROCHLOROTHIAZIDE [Concomitant]
     Indication: HYPERTENSION
  4. ZALATAN [Concomitant]
     Indication: GLAUCOMA
  5. METHAZOLAMIDE [Concomitant]
  6. XALATAN [Concomitant]
  7. BETIMOL [Concomitant]
  8. SYMBICORT [Concomitant]
     Dates: start: 20050301, end: 20090814

REACTIONS (4)
  - ASTHENIA [None]
  - HYPOAESTHESIA [None]
  - PAIN IN EXTREMITY [None]
  - VISION BLURRED [None]
